FAERS Safety Report 5514015-3 (Version None)
Quarter: 2007Q4

REPORT INFORMATION
  Report Type: 
  Country: None (occurrence: None)
  Receive Date: 20071113
  Receipt Date: 20071105
  Transmission Date: 20080405
  Serious: Yes (Hospitalization, Other)
  Sender: FDA-Public Use
  Company Number: NSADSS2001021023

PATIENT
  Sex: Male
  Weight: 60 kg

DRUGS (5)
  1. REMICADE [Suspect]
     Route: 041
     Dates: start: 20010209
  2. REMICADE [Suspect]
     Route: 041
     Dates: start: 20010209
  3. REMICADE [Suspect]
     Indication: ANKYLOSING SPONDYLITIS
     Route: 041
     Dates: start: 20010209
  4. METHOTREXATE [Concomitant]
     Indication: INFLAMMATORY PAIN
     Route: 048
     Dates: start: 20010208
  5. SPECIAFOLDINE [Concomitant]
     Indication: INFLAMMATORY PAIN
     Route: 048
     Dates: start: 20010208

REACTIONS (2)
  - PLEURISY [None]
  - TUBERCULOSIS [None]
